FAERS Safety Report 6571014-0 (Version None)
Quarter: 2010Q1

REPORT INFORMATION
  Report Type: 
  Country: None (occurrence: None)
  Receive Date: 20100204
  Receipt Date: 20100126
  Transmission Date: 20100710
  Serious: Yes (Death, Other)
  Sender: FDA-Public Use
  Company Number: US-AMGEN-US375668

PATIENT
  Sex: Female
  Weight: 55.8 kg

DRUGS (7)
  1. NPLATE [Suspect]
     Indication: IDIOPATHIC THROMBOCYTOPENIC PURPURA
     Route: 058
     Dates: start: 20081016, end: 20091104
  2. XANAX [Concomitant]
  3. VITAMINS, OTHER COMBINATIONS [Concomitant]
  4. CRESTOR [Concomitant]
  5. PHOSLO [Concomitant]
  6. RYTHMOL [Concomitant]
  7. COREG [Concomitant]

REACTIONS (8)
  - ANOGENITAL WARTS [None]
  - ARTERIOVENOUS FISTULA SITE HAEMORRHAGE [None]
  - ASTHENIA [None]
  - DEATH [None]
  - DYSPNOEA [None]
  - PLEURAL EFFUSION [None]
  - SPLENIC HAEMORRHAGE [None]
  - VAGINAL DYSPLASIA [None]
